FAERS Safety Report 4761577-X (Version None)
Quarter: 2005Q3

REPORT INFORMATION
  Report Type: 
  Country: None (occurrence: None)
  Receive Date: 20050906
  Receipt Date: 20050701
  Transmission Date: 20060218
  Serious: Yes (Death, Life-Threatening, Hospitalization, Disabling, Other)
  Sender: FDA-Public Use
  Company Number: 2005CG01207

PATIENT
  Age: 24477 Day
  Sex: Male
  Weight: 71 kg

DRUGS (15)
  1. IRESSA [Suspect]
     Indication: SQUAMOUS CELL CARCINOMA
     Route: 048
     Dates: start: 20050421, end: 20050621
  2. RADIOTHERAPY [Suspect]
     Indication: SQUAMOUS CELL CARCINOMA
     Dosage: 2 GRAYS PER DAY FIVE DAYS OVER SEVEN
     Dates: start: 20050428, end: 20050621
  3. OMEPRAZOLE [Concomitant]
     Indication: ABDOMINAL PAIN UPPER
     Dates: end: 20050509
  4. FLECAINIDE ACETATE [Concomitant]
     Indication: PROPHYLAXIS
     Route: 048
     Dates: end: 20050627
  5. BRONCHODUAL [Concomitant]
     Indication: ASTHMA
     Dates: end: 20050703
  6. BRONCHODUAL [Concomitant]
     Indication: PNEUMONIA
     Dates: end: 20050703
  7. GAVISCON [Concomitant]
     Indication: ABDOMINAL PAIN UPPER
     Route: 048
     Dates: start: 20050515, end: 20050703
  8. PRIMPERAN INJ [Concomitant]
     Indication: PROPHYLAXIS OF NAUSEA AND VOMITING
     Dates: start: 20050510, end: 20050511
  9. PRIMPERAN INJ [Concomitant]
     Route: 048
     Dates: start: 20050523, end: 20050703
  10. SINTROM [Concomitant]
     Indication: THROMBOSIS PROPHYLAXIS
     Dates: end: 20050510
  11. SINTROM [Concomitant]
     Dates: start: 20050512, end: 20050513
  12. SINTROM [Concomitant]
     Dates: start: 20050518, end: 20050701
  13. TIMOPTIC [Concomitant]
     Indication: GLAUCOMA
     Route: 047
     Dates: end: 20050701
  14. TAREG [Concomitant]
     Indication: HYPERTENSION
     Dates: end: 20050509
  15. TAHOR [Concomitant]
     Indication: HYPERCHOLESTEROLAEMIA
     Dates: end: 20050509

REACTIONS (21)
  - ATRIOVENTRICULAR BLOCK COMPLETE [None]
  - BODY TEMPERATURE INCREASED [None]
  - DYSPHAGIA [None]
  - EJECTION FRACTION DECREASED [None]
  - HAEMOGLOBIN DECREASED [None]
  - HYPOTENSION [None]
  - HYPOXIA [None]
  - LUNG DISORDER [None]
  - LUNG INFECTION [None]
  - LUNG INFILTRATION [None]
  - LYMPHADENOPATHY [None]
  - LYMPHANGIOSIS CARCINOMATOSA [None]
  - MIOSIS [None]
  - OESOPHAGEAL DISORDER [None]
  - PERFORMANCE STATUS DECREASED [None]
  - PERICARDIAL EFFUSION [None]
  - PLATELET COUNT DECREASED [None]
  - PULMONARY EMBOLISM [None]
  - RESPIRATORY ACIDOSIS [None]
  - RESPIRATORY DISTRESS [None]
  - TACHYCARDIA [None]
